FAERS Safety Report 7809548-0 (Version None)
Quarter: 2011Q4

REPORT INFORMATION
  Report Type: 
  Country: None (occurrence: None)
  Receive Date: 20111012
  Receipt Date: 20111006
  Transmission Date: 20120403
  Serious: Yes (Other)
  Sender: FDA-Public Use
  Company Number: PHHY2011CA76657

PATIENT
  Sex: Female

DRUGS (2)
  1. LIDOCAINE [Concomitant]
  2. ZOLEDRONOC ACID [Suspect]
     Dosage: UNK
     Route: 042
     Dates: start: 20101014

REACTIONS (2)
  - CYSTITIS [None]
  - BLOOD URINE [None]
